FAERS Safety Report 24450135 (Version 1)
Quarter: 2024Q4

REPORT INFORMATION
  Report Type: Spontaneous
  Country: US (occurrence: None)
  Receive Date: 20241016
  Receipt Date: 20241016
  Transmission Date: 20250114
  Serious: Yes (Death)
  Sender: Public
  Company Number: None

PATIENT
  Age: 75 Year
  Sex: Male

DRUGS (20)
  1. FLUCONAZOLE [Suspect]
     Active Substance: FLUCONAZOLE
  2. VITAMIN B-COMPLEX [Suspect]
     Active Substance: DEXPANTHENOL\NIACINAMIDE\PYRIDOXINE HYDROCHLORIDE\RIBOFLAVIN 5^-PHOSPHATE SODIUM\THIAMINE HYDROCHLOR
  3. ZINC SULFATE [Suspect]
     Active Substance: ZINC SULFATE
  4. PEPCID [Suspect]
     Active Substance: FAMOTIDINE
  5. DOCUSATE SODIUM [Suspect]
     Active Substance: DOCUSATE SODIUM
  6. MIRALAX [Suspect]
     Active Substance: POLYETHYLENE GLYCOL 3350
  7. LATUDA [Suspect]
     Active Substance: LURASIDONE HYDROCHLORIDE
  8. WELLBUTRIN SR [Suspect]
     Active Substance: BUPROPION HYDROCHLORIDE
  9. ZOLOFT [Suspect]
     Active Substance: SERTRALINE HYDROCHLORIDE
  10. FISH OIL [Suspect]
     Active Substance: FISH OIL
  11. CLONIDINE [Suspect]
     Active Substance: CLONIDINE
     Dosage: OTHER STRENGTH : 0.3MG/24H;?FREQUENCY : WEEKLY;?
  12. SODIUM BICARBONATE [Suspect]
     Active Substance: SODIUM BICARBONATE
  13. LEVOTHYROXINE [Suspect]
     Active Substance: LEVOTHYROXINE
  14. ESCITALOPRAM [Suspect]
     Active Substance: ESCITALOPRAM OXALATE
  15. BUPROPION [Suspect]
     Active Substance: BUPROPION
  16. AMLODIPINE [Suspect]
     Active Substance: AMLODIPINE BESYLATE
  17. PANTOPRAZOLE [Suspect]
     Active Substance: PANTOPRAZOLE
  18. SIROLIMUS [Suspect]
     Active Substance: SIROLIMUS
  19. PREDNISONE [Suspect]
     Active Substance: PREDNISONE
  20. NIFEDIPINE [Suspect]
     Active Substance: NIFEDIPINE

REACTIONS (1)
  - Hospice care [None]

NARRATIVE: CASE EVENT DATE: 20241016
